FAERS Safety Report 5376051-X (Version None)
Quarter: 2007Q3

REPORT INFORMATION
  Report Type: 
  Country: None (occurrence: None)
  Receive Date: 20070702
  Receipt Date: 20070620
  Transmission Date: 20080115
  Serious: Yes (Hospitalization)
  Sender: FDA-Public Use
  Company Number: FR-AMGEN-UK230820

PATIENT
  Age: 69 Year
  Sex: Female

DRUGS (6)
  1. ARANESP [Suspect]
     Indication: RENAL FAILURE CHRONIC
     Route: 058
     Dates: end: 20070515
  2. LOXEN [Concomitant]
  3. METOPROLOL TARTRATE [Concomitant]
     Route: 048
  4. ADANCOR [Concomitant]
     Route: 048
  5. RENAGEL [Concomitant]
  6. NEXIUM [Concomitant]
     Route: 048

REACTIONS (3)
  - INFLAMMATION [None]
  - LEUKOCYTOSIS [None]
  - PYREXIA [None]
